FAERS Safety Report 24604322 (Version 1)
Quarter: 2024Q4

REPORT INFORMATION
  Report Type: Spontaneous
  Country: US (occurrence: US)
  Receive Date: 20241111
  Receipt Date: 20241111
  Transmission Date: 20250115
  Serious: No
  Sender: PFIZER
  Company Number: US-PFIZER INC-202400296947

PATIENT
  Sex: Male

DRUGS (2)
  1. TALZENNA [Suspect]
     Active Substance: TALAZOPARIB TOSYLATE
  2. XTANDI [Suspect]
     Active Substance: ENZALUTAMIDE

REACTIONS (1)
  - Neutrophil count decreased [Unknown]
